FAERS Safety Report 14245129 (Version 3)
Quarter: 2018Q1

REPORT INFORMATION
  Report Type: Spontaneous
  Country: US (occurrence: US)
  Receive Date: 20171202
  Receipt Date: 20180112
  Transmission Date: 20180508
  Serious: No
  Sender: FDA-Public Use
  Company Number: US-ASTRAZENECA-2017SF22155

PATIENT
  Age: 28535 Day
  Sex: Male
  Weight: 79.4 kg

DRUGS (2)
  1. SYSTANE (HYPROMELLOSE 2910 (4000 MPA.S)) [Concomitant]
     Active Substance: HYPROMELLOSE 2910 (4000 MPA.S)
  2. TAGRISSO [Suspect]
     Active Substance: OSIMERTINIB
     Indication: LUNG NEOPLASM MALIGNANT
     Route: 048
     Dates: start: 20171114

REACTIONS (5)
  - Tongue discolouration [Recovered/Resolved]
  - Dry eye [Unknown]
  - Photophobia [Unknown]
  - Eye haemorrhage [Unknown]
  - Asthenopia [Unknown]

NARRATIVE: CASE EVENT DATE: 20171128
